FAERS Safety Report 5912057-7 (Version None)
Quarter: 2008Q4

REPORT INFORMATION
  Report Type: 
  Country: None (occurrence: None)
  Receive Date: 20081008
  Receipt Date: 20081006
  Transmission Date: 20090506
  Serious: Yes (Other)
  Sender: FDA-Public Use
  Company Number: US-ELI_LILLY_AND_COMPANY-US200809003264

PATIENT
  Sex: Male

DRUGS (10)
  1. HUMALOG [Suspect]
  2. PLAVIX [Concomitant]
  3. PRILOSEC [Concomitant]
  4. ASPIRIN [Concomitant]
  5. ATENOLOL [Concomitant]
  6. RENAGEL [Concomitant]
  7. METOCLOPRAMIDE [Concomitant]
  8. TYLENOL /USA/ [Concomitant]
  9. LANTUS [Concomitant]
  10. AMLODIPINE [Concomitant]

REACTIONS (3)
  - BLOOD GLUCOSE INCREASED [None]
  - DRUG INEFFECTIVE [None]
  - RENAL FAILURE [None]
